FAERS Safety Report 5264244-1 (Version None)
Quarter: 2007Q1

REPORT INFORMATION
  Report Type: 
  Country: None (occurrence: None)
  Receive Date: 20070313
  Receipt Date: 20070305
  Transmission Date: 20070707
  Serious: Yes (Life-Threatening, Hospitalization)
  Sender: FDA-Public Use
  Company Number: DE-SHR-DE-2007-006349

PATIENT
  Age: 37 Year
  Sex: Male

DRUGS (1)
  1. ULTRAVIST 300 [Suspect]
     Dosage: 100 ML, 1 DOSE
     Route: 042
     Dates: start: 20070209, end: 20070209

REACTIONS (9)
  - ANGIOEDEMA [None]
  - DYSPNOEA [None]
  - NAUSEA [None]
  - OCULAR HYPERAEMIA [None]
  - RHINORRHOEA [None]
  - SNEEZING [None]
  - SYNCOPE [None]
  - TACHYCARDIA [None]
  - URTICARIA [None]
